FAERS Safety Report 8560225-0 (Version None)
Quarter: 2012Q3

REPORT INFORMATION
  Report Type: 
  Country: None (occurrence: None)
  Receive Date: 20120802
  Receipt Date: 20120731
  Transmission Date: 20120928
  Serious: Yes (Other)
  Sender: FDA-Public Use
  Company Number: US-PFIZER INC-2012186187

PATIENT
  Sex: Female
  Weight: 70.748 kg

DRUGS (3)
  1. SEROQUEL [Concomitant]
     Indication: DISSOCIATIVE IDENTITY DISORDER
     Dosage: 300 MG, 1X/DAY
  2. CHANTIX [Suspect]
     Indication: SMOKING CESSATION THERAPY
     Dosage: 0.5 MG, 1X/DAY
     Route: 048
     Dates: start: 20120201, end: 20120101
  3. CHANTIX [Suspect]
     Dosage: 1 MG, 2X/DAY
     Route: 048
     Dates: start: 20120101, end: 20120601

REACTIONS (6)
  - DISSOCIATIVE IDENTITY DISORDER [None]
  - IRRITABILITY [None]
  - HEADACHE [None]
  - SLEEP DISORDER [None]
  - AGGRESSION [None]
  - NERVOUSNESS [None]
